FAERS Safety Report 21548741 (Version 2)
Quarter: 2022Q4

REPORT INFORMATION
  Report Type: Report from Study
  Country: CA (occurrence: CA)
  Receive Date: 20221103
  Receipt Date: 20221108
  Transmission Date: 20230113
  Serious: Yes (Hospitalization)
  Sender: FDA-Public Use
  Company Number: CA-002147023-NVSC2022CA245176

PATIENT
  Age: 18 Year
  Sex: Female
  Weight: 44.8 kg

DRUGS (3)
  1. TRAMETINIB [Suspect]
     Active Substance: TRAMETINIB
     Indication: Neurofibroma
     Dosage: 1 MG
     Route: 048
     Dates: start: 20220923
  2. TRAMETINIB [Suspect]
     Active Substance: TRAMETINIB
     Indication: Glioma
  3. DIPHENHYDRAMINE [Concomitant]
     Active Substance: DIPHENHYDRAMINE
     Indication: Infusion related reaction
     Dosage: 50 MG, Q4H
     Route: 042
     Dates: start: 20221027, end: 20221027

REACTIONS (1)
  - Bacteraemia [Recovered/Resolved]

NARRATIVE: CASE EVENT DATE: 20221026
